FAERS Safety Report 4494223-3 (Version None)
Quarter: 2004Q4

REPORT INFORMATION
  Report Type: 
  Country: None (occurrence: None)
  Receive Date: 20041102
  Receipt Date: 20041022
  Transmission Date: 20050328
  Serious: Yes (Other)
  Sender: FDA-Public Use
  Company Number: 2004230270JP

PATIENT
  Age: 58 Year
  Sex: Female
  Weight: 68 kg

DRUGS (7)
  1. HALCION [Suspect]
     Indication: INSOMNIA
     Dosage: 1 MG, QD, ORAL
     Route: 048
     Dates: start: 20040815
  2. HALCION [Suspect]
     Indication: INSOMNIA
     Dosage: 1 MG, QD, ORAL
     Route: 048
     Dates: start: 20040821
  3. ZOLPIDEM TARTRATE [Suspect]
     Indication: INSOMNIA
     Dosage: 10 MG , QD, ORAL
     Route: 048
     Dates: start: 20040821
  4. BROTIZOLAM (BROTIZOLAM) [Suspect]
     Indication: INSOMNIA
     Dosage: 0.5 MG , QID, ORAL
     Route: 048
  5. AMOBAN (ZOPICLONE) [Suspect]
     Indication: INSOMNIA
     Dosage: 1 MG, QD, ORAL
     Route: 048
     Dates: end: 20040821
  6. LOXONIN (LOXOPROFEN SODIUM) [Concomitant]
  7. SELBEX (TEPRENONE) [Concomitant]

REACTIONS (7)
  - ABNORMAL BEHAVIOUR [None]
  - BRAIN CONTUSION [None]
  - DRUG DEPENDENCE [None]
  - DRUG WITHDRAWAL CONVULSIONS [None]
  - ROAD TRAFFIC ACCIDENT [None]
  - TEMPORAL LOBE EPILEPSY [None]
  - TIBIA FRACTURE [None]
